FAERS Safety Report 19178394 (Version 3)
Quarter: 2021Q2

REPORT INFORMATION
  Report Type: Spontaneous
  Country: GB (occurrence: GB)
  Receive Date: 20210426
  Receipt Date: 20210618
  Transmission Date: 20210717
  Serious: Yes (Other)
  Sender: FDA-Public Use
  Company Number: GB-SUN PHARMACEUTICAL INDUSTRIES LTD-2021RR-293205

PATIENT
  Age: 45 Year
  Sex: Male
  Weight: 88.9 kg

DRUGS (1)
  1. OLANZAPINE. [Suspect]
     Active Substance: OLANZAPINE
     Indication: ILL-DEFINED DISORDER
     Dosage: 5 MILLIGRAM, UNK
     Route: 048
     Dates: start: 20210326, end: 20210404

REACTIONS (5)
  - Rash [Unknown]
  - Constipation [Unknown]
  - Adverse drug reaction [Unknown]
  - Fatigue [Unknown]
  - Somnolence [Unknown]

NARRATIVE: CASE EVENT DATE: 20210326
